FAERS Safety Report 25890772 (Version 1)
Quarter: 2025Q4

REPORT INFORMATION
  Report Type: Spontaneous
  Country: US (occurrence: None)
  Receive Date: 20251006
  Receipt Date: 20251006
  Transmission Date: 20260117
  Serious: No
  Sender: FDA-CTU
  Company Number: None

PATIENT
  Age: 64 Year
  Sex: Male
  Weight: 86.85 kg

DRUGS (5)
  1. ROPINIROLE [Suspect]
     Active Substance: ROPINIROLE
     Indication: Periodic limb movement disorder
     Dosage: OTHER QUANTITY : 1 TABLET(S);?FREQUENCY : DAILY;?
     Route: 048
  2. CIALIS [Concomitant]
     Active Substance: TADALAFIL
  3. AMLODIPINE [Concomitant]
     Active Substance: AMLODIPINE BESYLATE
  4. BACLOFEN [Concomitant]
     Active Substance: BACLOFEN
  5. GABAPENTIN [Concomitant]
     Active Substance: GABAPENTIN

REACTIONS (2)
  - Gambling disorder [None]
  - Hypersexuality [None]

NARRATIVE: CASE EVENT DATE: 20131006
